FAERS Safety Report 8492983-8 (Version None)
Quarter: 2012Q3

REPORT INFORMATION
  Report Type: 
  Country: None (occurrence: None)
  Receive Date: 20120706
  Receipt Date: 20120627
  Transmission Date: 20120928
  Serious: Yes (Hospitalization, Other)
  Sender: FDA-Public Use
  Company Number: CH-JNJFOC-20120608243

PATIENT
  Sex: Male
  Weight: 85 kg

DRUGS (5)
  1. XARELTO [Suspect]
     Indication: ATRIAL FIBRILLATION
     Route: 048
     Dates: start: 20120524, end: 20120526
  2. XARELTO [Suspect]
     Indication: CEREBROVASCULAR ACCIDENT PROPHYLAXIS
     Route: 048
     Dates: start: 20120524, end: 20120526
  3. CORDARONE [Concomitant]
  4. ATACAND HCT [Suspect]
     Indication: PRODUCT USED FOR UNKNOWN INDICATION
  5. AMLODIPINE [Suspect]
     Indication: PRODUCT USED FOR UNKNOWN INDICATION

REACTIONS (4)
  - CONJUNCTIVAL HAEMORRHAGE [None]
  - VISUAL FIELD DEFECT [None]
  - VERTEBRAL ARTERY THROMBOSIS [None]
  - ISCHAEMIC STROKE [None]
